FAERS Safety Report 17130770 (Version 2)
Quarter: 2020Q1

REPORT INFORMATION
  Report Type: Spontaneous
  Country: IT (occurrence: IT)
  Receive Date: 20191209
  Receipt Date: 20200122
  Transmission Date: 20200409
  Serious: Yes (Death, Other)
  Sender: FDA-Public Use
  Company Number: IT-AMGEN-ITASP2019202595

PATIENT

DRUGS (4)
  1. INOTUZUMAB OZOGAMICIN [Concomitant]
     Active Substance: INOTUZUMAB OZOGAMICIN
     Indication: B PRECURSOR TYPE ACUTE LEUKAEMIA
     Dosage: 1.8 MILLIGRAM/SQ. METER
     Route: 042
  2. AMIODARONE [Concomitant]
     Active Substance: AMIODARONE
  3. BLINATUMOMAB [Suspect]
     Active Substance: BLINATUMOMAB
     Indication: B PRECURSOR TYPE ACUTE LEUKAEMIA
     Dosage: 28 MILLIGRAM/SQ. METER, QD
     Route: 042
  4. INOTUZUMAB OZOGAMICIN [Concomitant]
     Active Substance: INOTUZUMAB OZOGAMICIN
     Dosage: 1.5 MILLIGRAM/SQ. METER, EVERY THREE-FOUR WEEKS
     Route: 042

REACTIONS (5)
  - Acute lymphocytic leukaemia recurrent [Fatal]
  - Transaminases increased [Unknown]
  - Electrocardiogram QT prolonged [Unknown]
  - Cytokine release syndrome [Unknown]
  - Generalised tonic-clonic seizure [Recovered/Resolved]
